FAERS Safety Report 8112231-8 (Version None)
Quarter: 2012Q1

REPORT INFORMATION
  Report Type: 
  Country: None (occurrence: None)
  Receive Date: 20120203
  Receipt Date: 20120131
  Transmission Date: 20120608
  Serious: No
  Sender: FDA-Public Use
  Company Number: US-PFIZER INC-2012026610

PATIENT
  Sex: Female
  Weight: 83.9 kg

DRUGS (1)
  1. IBUPROFEN (ADVIL) [Suspect]
     Dosage: 200 MG, 2X/DAY
     Route: 048
     Dates: start: 20120130, end: 20120131

REACTIONS (3)
  - DIARRHOEA [None]
  - GRIP STRENGTH DECREASED [None]
  - PAIN IN EXTREMITY [None]
